FAERS Safety Report 19086549 (Version 2)
Quarter: 2023Q2

REPORT INFORMATION
  Report Type: Spontaneous
  Country: US (occurrence: None)
  Receive Date: 20210402
  Receipt Date: 20230511
  Transmission Date: 20230722
  Serious: Yes (Hospitalization)
  Sender: FDA-Public Use
  Company Number: US-MERCK HEALTHCARE KGAA-9228315

PATIENT
  Sex: Male

DRUGS (2)
  1. REBIF [Suspect]
     Active Substance: INTERFERON BETA-1A
     Indication: Multiple sclerosis
     Dosage: 44 MCG/.5ML
     Route: 058
     Dates: start: 202004
  2. REBIF [Suspect]
     Active Substance: INTERFERON BETA-1A
     Dosage: 44 MCG/.5ML
     Route: 058
     Dates: start: 202105

REACTIONS (2)
  - Pyrexia [Unknown]
  - Aphasia [Not Recovered/Not Resolved]
